FAERS Safety Report 11232932 (Version 2)
Quarter: 2015Q3

REPORT INFORMATION
  Report Type: Report from Study
  Country: DE (occurrence: AU)
  Receive Date: 20150701
  Receipt Date: 20150706
  Transmission Date: 20151125
  Serious: Yes (Death)
  Sender: FDA-Public Use
  Company Number: DE-ACTELION-A-US2015-120358

PATIENT
  Age: 72 Year
  Sex: Male

DRUGS (1)
  1. VENTAVIS [Suspect]
     Active Substance: ILOPROST
     Indication: PULMONARY ARTERIAL HYPERTENSION
     Dosage: UNK, 5 TIMES DAILY
     Route: 055
     Dates: start: 201402

REACTIONS (3)
  - Product use issue [Unknown]
  - Pulmonary arterial hypertension [Fatal]
  - Pulmonary veno-occlusive disease [Fatal]
